FAERS Safety Report 25906062 (Version 1)
Quarter: 2025Q4

REPORT INFORMATION
  Report Type: Spontaneous
  Country: BR (occurrence: BR)
  Receive Date: 20251010
  Receipt Date: 20251010
  Transmission Date: 20260117
  Serious: Yes (Hospitalization)
  Sender: BRISTOL-MYERS SQUIBB COMPANY
  Company Number: BR-BRISTOL-MYERS SQUIBB COMPANY-2025-125681

PATIENT
  Age: 38 Year
  Sex: Female
  Weight: 79 kg

DRUGS (6)
  1. SPRYCEL [Suspect]
     Active Substance: DASATINIB
     Indication: Leukaemia
     Dosage: 100 MG BOX WITH 30 TABLETS
     Dates: start: 202506
  2. SPRYCEL [Suspect]
     Active Substance: DASATINIB
     Dosage: STRENGTH:100MG ?BOX WITH 30 TABLETS
     Dates: start: 202506
  3. SPRYCEL [Suspect]
     Active Substance: DASATINIB
     Dosage: STRENGTH:20MG?BOX WITH 60 TABLETS
     Dates: start: 202506
  4. BACTRIM [Concomitant]
     Active Substance: SULFAMETHOXAZOLE\TRIMETHOPRIM
     Indication: Product used for unknown indication
     Dosage: STRENGTH: 800MG?WEEK - MON, WED, FRI
  5. PANTOPRAZOLE [Concomitant]
     Active Substance: PANTOPRAZOLE
     Indication: Product used for unknown indication
     Dosage: 1X/DAY ON EMPTY STOMACH
  6. ACYCLOVIR [Concomitant]
     Active Substance: ACYCLOVIR
     Indication: Product used for unknown indication

REACTIONS (3)
  - Dermatitis allergic [Not Recovered/Not Resolved]
  - Skin exfoliation [Recovered/Resolved]
  - Off label use [Unknown]

NARRATIVE: CASE EVENT DATE: 20250801
